FAERS Safety Report 8674849 (Version 3)
Quarter: 2013Q2

REPORT INFORMATION
  Report Type: Spontaneous
  Country: US (occurrence: US)
  Receive Date: 20120720
  Receipt Date: 20130401
  Transmission Date: 20140414
  Serious: Yes (Hospitalization, Other)
  Sender: FDA-Public Use
  Company Number: US-PFIZER INC-2012172728

PATIENT
  Age: 54 Year
  Sex: Female
  Weight: 69.39 kg

DRUGS (3)
  1. LYRICA [Suspect]
     Indication: PERIPHERAL NERVE INJURY
     Dosage: 300MG IN AM, 150MG IN AFTERNOON, 300MG AT NIGHT
     Route: 048
  2. LYRICA [Suspect]
     Dosage: 150 MG, AS NEEDED
  3. HYDROCODONE [Concomitant]
     Indication: BACK PAIN
     Dosage: 10/325

REACTIONS (10)
  - Emphysema [Unknown]
  - Dyspnoea [Unknown]
  - Chest pain [Unknown]
  - Stress [Unknown]
  - Incorrect dose administered [Unknown]
  - Hypersensitivity [Not Recovered/Not Resolved]
  - Sneezing [Not Recovered/Not Resolved]
  - Pruritus [Not Recovered/Not Resolved]
  - Rhinorrhoea [Not Recovered/Not Resolved]
  - Throat irritation [Not Recovered/Not Resolved]
